FAERS Safety Report 8726356 (Version 2)
Quarter: 2012Q4

REPORT INFORMATION
  Report Type: 
  Country: NL (occurrence: NL)
  Receive Date: 20120816
  Receipt Date: 20121030
  Transmission Date: 20130627
  Serious: Yes (Death, Other)
  Sender: FDA-Public Use
  Company Number: PHHY2012NL068877

PATIENT
  Age: 86 Year
  Sex: Male

DRUGS (2)
  1. ZOMETA [Suspect]
     Indication: PROSTATE CANCER METASTATIC
     Dosage: 4mg/100ml solution for iv infusion once per 28 days
     Route: 042
     Dates: start: 20120523
  2. ZOMETA [Suspect]
     Dosage: 4mg/100ml solution for iv infusion once per 28 days
     Route: 042
     Dates: start: 20120711

REACTIONS (4)
  - Death [Fatal]
  - Gastrointestinal disorder [Not Recovered/Not Resolved]
  - Abnormal faeces [Not Recovered/Not Resolved]
  - Feeling abnormal [Not Recovered/Not Resolved]
